FAERS Safety Report 16308652 (Version 1)
Quarter: 2019Q2

REPORT INFORMATION
  Report Type: Spontaneous
  Country: US (occurrence: US)
  Receive Date: 20190514
  Receipt Date: 20190514
  Transmission Date: 20190711
  Serious: Yes (Other)
  Sender: FDA-Public Use
  Company Number: US-BAYER-2019-091294

PATIENT
  Age: 37 Year
  Sex: Female

DRUGS (6)
  1. REGORAFENIB. [Suspect]
     Active Substance: REGORAFENIB
     Dosage: 120 MG
     Dates: start: 20110117, end: 20110117
  2. REGORAFENIB. [Suspect]
     Active Substance: REGORAFENIB
     Dosage: 80 MG
     Dates: start: 20110118
  3. REGORAFENIB. [Suspect]
     Active Substance: REGORAFENIB
     Dosage: 120 MG
     Dates: start: 20110214
  4. CAPECITABINE. [Suspect]
     Active Substance: CAPECITABINE
  5. BEVACIZUMAB. [Suspect]
     Active Substance: BEVACIZUMAB
  6. REGORAFENIB. [Suspect]
     Active Substance: REGORAFENIB
     Dosage: 120 MG
     Dates: start: 20121105

REACTIONS (3)
  - Metastases to lung [None]
  - Metastases to lung [Not Recovered/Not Resolved]
  - Rash [None]

NARRATIVE: CASE EVENT DATE: 20111010
